FAERS Safety Report 10795395 (Version 1)
Quarter: 2015Q1

REPORT INFORMATION
  Report Type: Spontaneous
  Country: US (occurrence: US)
  Receive Date: 20150214
  Receipt Date: 20150214
  Transmission Date: 20150721
  Serious: No
  Sender: FDA-Public Use
  Company Number: US-GLAXOSMITHKLINE-A1062995A

PATIENT

DRUGS (1)
  1. NICODERM CQ [Suspect]
     Active Substance: NICOTINE
     Indication: EX-TOBACCO USER

REACTIONS (6)
  - Ear pruritus [Unknown]
  - Rhinorrhoea [Unknown]
  - Sneezing [Unknown]
  - Application site reaction [Unknown]
  - Hypersensitivity [Unknown]
  - Throat irritation [Unknown]
